FAERS Safety Report 8845189 (Version 1)
Quarter: 2012Q4

REPORT INFORMATION
  Report Type: Spontaneous
  Country: JP (occurrence: None)
  Receive Date: 20121015
  Receipt Date: 20121015
  Transmission Date: 20130627
  Serious: Yes (Other)
  Sender: FDA-Public Use
  Company Number: 2012P1060604

PATIENT

DRUGS (2)
  1. FAMOTIDINE [Suspect]
     Dates: end: 2012
  2. UNSPECIFIED DRUG [Suspect]

REACTIONS (1)
  - Delirium [None]
